FAERS Safety Report 21715479 (Version 1)
Quarter: 2022Q4

REPORT INFORMATION
  Report Type: Spontaneous
  Country: US (occurrence: None)
  Receive Date: 20221209
  Receipt Date: 20221209
  Transmission Date: 20230113
  Serious: Yes (Other)
  Sender: FDA-Public Use
  Company Number: None

PATIENT
  Age: 24 Year
  Sex: Male
  Weight: 78 kg

DRUGS (6)
  1. REMICADE [Suspect]
     Active Substance: INFLIXIMAB
     Indication: Crohn^s disease
     Dosage: OTHER FREQUENCY : EVERY 8 WEEKS;?
     Route: 041
     Dates: start: 20200714
  2. azathioprine 50 mg tab daily [Concomitant]
  3. citalopram 20 mg tab daily [Concomitant]
  4. cyproheptadine 4 mg tab (8 mg/d in divided doses) [Concomitant]
  5. mesalamine ER 0.375 g caps (2.25 g/d in divided doses) [Concomitant]
  6. methylphenidate 10 mg tab (30 mg/d in divided doses) [Concomitant]

REACTIONS (2)
  - Generalised tonic-clonic seizure [None]
  - Product preparation issue [None]

NARRATIVE: CASE EVENT DATE: 20221111
